FAERS Safety Report 4549554-5 (Version None)
Quarter: 2005Q1

REPORT INFORMATION
  Report Type: 
  Country: None (occurrence: None)
  Receive Date: 20050111
  Receipt Date: 20050103
  Transmission Date: 20050727
  Serious: Yes (Other)
  Sender: FDA-Public Use
  Company Number: US-JNJFOC-20050100733

PATIENT
  Sex: Male

DRUGS (1)
  1. NIZORAL [Suspect]
     Indication: PROSTATE CANCER
     Route: 049

REACTIONS (1)
  - CEREBROVASCULAR ACCIDENT [None]
